FAERS Safety Report 7561011-0 (Version None)
Quarter: 2011Q2

REPORT INFORMATION
  Report Type: 
  Country: None (occurrence: None)
  Receive Date: 20110621
  Receipt Date: 20101220
  Transmission Date: 20111010
  Serious: No
  Sender: FDA-Public Use
  Company Number: US-ASTRAZENECA-2010SE60371

PATIENT
  Age: 61 Year
  Sex: Female

DRUGS (1)
  1. ATACAND HCT [Suspect]
     Dosage: 16+12.5 MG
     Route: 048

REACTIONS (3)
  - NERVOUSNESS [None]
  - DRUG DOSE OMISSION [None]
  - HYPERTENSION [None]
